FAERS Safety Report 15124729 (Version 2)
Quarter: 2018Q3

REPORT INFORMATION
  Report Type: Spontaneous
  Country: IE (occurrence: IE)
  Receive Date: 20180710
  Receipt Date: 20180810
  Transmission Date: 20181010
  Serious: Yes (Death, Other)
  Sender: FDA-Public Use
  Company Number: IE-009507513-1807IRL001554

PATIENT
  Age: 83 Year
  Sex: Female

DRUGS (1)
  1. POSACONAZOLE [Suspect]
     Active Substance: POSACONAZOLE
     Indication: SINUSITIS ASPERGILLUS
     Dosage: UNK
     Route: 048

REACTIONS (1)
  - Acute kidney injury [Fatal]
